FAERS Safety Report 20985910 (Version 1)
Quarter: 2022Q2

REPORT INFORMATION
  Report Type: Spontaneous
  Country: US (occurrence: None)
  Receive Date: 20220617
  Receipt Date: 20220617
  Transmission Date: 20220721
  Serious: Yes (Other)
  Sender: FDA-Public Use
  Company Number: None

PATIENT
  Age: 77 Year
  Sex: Male

DRUGS (1)
  1. CABENUVA [Suspect]
     Active Substance: CABOTEGRAVIR\RILPIVIRINE
     Indication: HIV infection
     Dosage: 6ML Q 2 MONTHS IM?
     Route: 030
     Dates: start: 20220121, end: 20220617

REACTIONS (1)
  - Skin texture abnormal [None]

NARRATIVE: CASE EVENT DATE: 20220617
